FAERS Safety Report 24604617 (Version 3)
Quarter: 2025Q1

REPORT INFORMATION
  Report Type: Report from Study
  Country: US (occurrence: US)
  Receive Date: 20241111
  Receipt Date: 20250117
  Transmission Date: 20250409
  Serious: Yes (Other)
  Sender: AMGEN
  Company Number: US-AMGEN-USASL2024219812

PATIENT
  Age: 64 Year
  Sex: Female

DRUGS (15)
  1. VECTIBIX [Suspect]
     Active Substance: PANITUMUMAB
     Indication: Product used for unknown indication
     Dosage: UNK UNK, Q2WK (100 MG, 5 ML (20 MG/ML)
     Route: 040
  2. VECTIBIX [Suspect]
     Active Substance: PANITUMUMAB
     Dosage: 489 MILLIGRAM, Q2WK (100 MG, 5 ML (20 MG/ML)
     Route: 040
     Dates: start: 20240923
  3. VECTIBIX [Suspect]
     Active Substance: PANITUMUMAB
     Dosage: 489 MILLIGRAM, Q2WK (100 MG, 5 ML (20 MG/ML)
     Route: 040
     Dates: start: 20241021
  4. ELOXATIN [Concomitant]
     Active Substance: OXALIPLATIN
     Route: 040
  5. LEUCOVORIN CALCIUM [Concomitant]
     Active Substance: LEUCOVORIN CALCIUM
     Route: 040
  6. FLUOROURACIL [Concomitant]
     Active Substance: FLUOROURACIL
     Route: 040
  7. CINVANTI [Concomitant]
     Active Substance: APREPITANT
     Route: 040
  8. ALOXI [Concomitant]
     Active Substance: PALONOSETRON HYDROCHLORIDE
  9. DECADRON [Concomitant]
     Active Substance: DEXAMETHASONE
  10. MAGNESIUM SULFATE [Concomitant]
     Active Substance: MAGNESIUM SULFATE
     Route: 040
  11. COMPAZINE [Concomitant]
     Active Substance: PROCHLORPERAZINE MALEATE
     Route: 040
  12. PEPCID [Concomitant]
     Active Substance: FAMOTIDINE
  13. ALBUTEROL SULFATE [Concomitant]
     Active Substance: ALBUTEROL SULFATE
  14. POTASSIUM CHLORIDE [Concomitant]
     Active Substance: POTASSIUM CHLORIDE
  15. ROLVEDON [Concomitant]
     Active Substance: EFLAPEGRASTIM-XNST

REACTIONS (17)
  - Stridor [Recovering/Resolving]
  - Dyspnoea [Recovering/Resolving]
  - Neuropathy peripheral [Unknown]
  - Skin disorder [Unknown]
  - Blood magnesium decreased [Unknown]
  - Diarrhoea [Recovering/Resolving]
  - Dizziness [Unknown]
  - Nausea [Recovering/Resolving]
  - Rash [Recovering/Resolving]
  - Dry skin [Recovering/Resolving]
  - Fatigue [Unknown]
  - Asthenia [Unknown]
  - Blood potassium abnormal [Unknown]
  - Neutrophil count abnormal [Unknown]
  - White blood cell disorder [Unknown]
  - Feeling cold [Recovering/Resolving]
  - Rhinorrhoea [Unknown]

NARRATIVE: CASE EVENT DATE: 20240101
